FAERS Safety Report 11982276 (Version 1)
Quarter: 2016Q1

REPORT INFORMATION
  Report Type: Spontaneous
  Country: US (occurrence: None)
  Receive Date: 20160129
  Receipt Date: 20160129
  Transmission Date: 20160526
  Serious: Yes (Disabling)
  Sender: FDA-Public Use
  Company Number: None

PATIENT
  Age: 72 Year
  Sex: Female
  Weight: 81.65 kg

DRUGS (13)
  1. FUROSEMIDE. [Concomitant]
     Active Substance: FUROSEMIDE
  2. KLOR-CON M10 [Concomitant]
     Active Substance: POTASSIUM CHLORIDE
  3. XGEVA [Suspect]
     Active Substance: DENOSUMAB
     Indication: LUNG NEOPLASM MALIGNANT
     Dosage: 1 MG INJECTION/ 1 EVERY 4 WEEKS GIVEN INTO/UNDER THE SKIN
     Route: 058
     Dates: start: 20130501, end: 20151104
  4. CLINDAMYCIN [Concomitant]
     Active Substance: CLINDAMYCIN\CLINDAMYCIN PHOSPHATE
  5. CHLORHEXIDINE GLUCONATE. [Concomitant]
     Active Substance: CHLORHEXIDINE GLUCONATE
  6. ADVIL [Concomitant]
     Active Substance: IBUPROFEN
  7. XALKORI [Concomitant]
     Active Substance: CRIZOTINIB
  8. RANITIDINE [Concomitant]
     Active Substance: RANITIDINE\RANITIDINE HYDROCHLORIDE
  9. CALCIUM CITRATE [Concomitant]
     Active Substance: CALCIUM CITRATE
  10. BYSTOLIC [Concomitant]
     Active Substance: NEBIVOLOL HYDROCHLORIDE
  11. LOW DOSE ASPIRIN [Concomitant]
     Active Substance: ASPIRIN
  12. IBUPROFEN. [Concomitant]
     Active Substance: IBUPROFEN
  13. CRANBERRY EXTRACT [Concomitant]
     Active Substance: CRANBERRY JUICE

REACTIONS (3)
  - Pain [None]
  - Osteonecrosis [None]
  - Tooth fracture [None]
